FAERS Safety Report 5708248-0 (Version None)
Quarter: 2008Q2

REPORT INFORMATION
  Report Type: 
  Country: None (occurrence: None)
  Receive Date: 20080417
  Receipt Date: 20080409
  Transmission Date: 20081010
  Serious: Yes (Hospitalization)
  Sender: FDA-Public Use
  Company Number: GB-ROCHE-557805

PATIENT
  Sex: Female
  Weight: 95.3 kg

DRUGS (7)
  1. ORLISTAT [Suspect]
     Indication: OBESITY
     Route: 048
     Dates: start: 20080228
  2. ASPIRIN [Concomitant]
     Indication: ANALGESIC THERAPY
     Route: 048
  3. ZANIDIP [Concomitant]
     Indication: HYPERTENSION
     Route: 048
  4. PRITOR [Concomitant]
     Indication: HYPERTENSION
     Route: 048
  5. LEVOTHYROXINE SODIUM [Concomitant]
     Route: 048
  6. FUROSEMIDE [Concomitant]
     Route: 048
  7. DOXYCYCLINE [Concomitant]
     Indication: ANTI-INFECTIVE THERAPY
     Route: 048

REACTIONS (2)
  - PLEURISY [None]
  - PULMONARY OEDEMA [None]
